FAERS Safety Report 6817226-X (Version None)
Quarter: 2010Q3

REPORT INFORMATION
  Report Type: 
  Country: None (occurrence: None)
  Receive Date: 20100706
  Receipt Date: 20100628
  Transmission Date: 20110219
  Serious: Yes (Hospitalization, Other)
  Sender: FDA-Public Use
  Company Number: US-SHIRE-ALL1-2010-03641

PATIENT

DRUGS (20)
  1. FOSRENOL [Suspect]
     Indication: HYPERPHOSPHATAEMIA
     Dosage: 1000 MG, 3X/DAY:TID
     Route: 048
     Dates: start: 20091001
  2. LEXAPRO [Concomitant]
     Indication: DEPRESSION
     Dosage: 10 MG, 1X/DAY:QD (AT BEDTIME)
     Route: 048
     Dates: start: 20000101
  3. LEXAPRO [Concomitant]
     Dosage: 20 MG, 1X/DAY:QD (IN THE MORNING)
     Route: 048
     Dates: start: 20000101
  4. ATACAND [Concomitant]
     Indication: RENAL FAILURE CHRONIC
     Dosage: 32 MG, 1X/DAY:QD
     Route: 048
     Dates: start: 20090101
  5. LABETALOL HCL [Concomitant]
     Indication: MALIGNANT HYPERTENSION
     Dosage: 300 MG, 2X/DAY:BID
     Route: 048
     Dates: start: 20080101
  6. LANTUS                             /01483501/ [Concomitant]
     Indication: DIABETES MELLITUS
     Dosage: 50 IU, 1X/DAY:QD
     Route: 058
  7. PLAVIX [Concomitant]
     Indication: BLOOD CHOLESTEROL INCREASED
     Dosage: 75 MG, 1X/DAY:QD
     Route: 048
  8. ALLOPURINOL [Concomitant]
     Indication: GOUT
     Dosage: 100 MG, 1X/DAY:QD
     Route: 048
  9. LASIX [Concomitant]
     Indication: PRODUCT USED FOR UNKNOWN INDICATION
     Dosage: 40 MG, 1X/DAY:QD
     Route: 048
  10. LIPITOR [Concomitant]
     Indication: BLOOD CHOLESTEROL INCREASED
     Dosage: 40 MG, 1X/DAY:QD
     Route: 048
     Dates: start: 19910101
  11. RENAL CAPS [Concomitant]
     Indication: RENAL FAILURE CHRONIC
     Dosage: UNK, 1X/DAY:QD (ONE CAPSULE DAILY)
     Route: 048
     Dates: start: 20080101
  12. FERROUS SULFATE [Concomitant]
     Indication: ANAEMIA
     Dosage: 325 MG, 1X/DAY:QD
     Route: 048
     Dates: start: 20080101
  13. SYNTHROID [Concomitant]
     Indication: PRODUCT USED FOR UNKNOWN INDICATION
     Dosage: 25 UG, 1X/DAY:QD
     Route: 048
     Dates: start: 20000101
  14. NEBULIZER TREATMENTS [Concomitant]
     Indication: SLEEP APNOEA SYNDROME
     Dosage: UNK MG, AS REQ'D
     Route: 055
     Dates: start: 20030101
  15. INSULIN LISPRO [Concomitant]
     Indication: DIABETES MELLITUS
     Dosage: UNK IU, AS REQ'D
     Route: 058
     Dates: start: 19810101
  16. MAGNESIUM OXIDE [Concomitant]
     Indication: RENAL FAILURE CHRONIC
     Dosage: 800 MG, 2X/DAY:BID
     Route: 048
     Dates: start: 20080101
  17. PERCOCET [Concomitant]
     Indication: PAIN
     Dosage: UNK MG, AS REQ'D ONE 10/650 MG TABLET
     Route: 048
  18. HALCION [Concomitant]
     Indication: INSOMNIA
     Dosage: .5 MG, 1X/DAY:QD (AT BEDTIME)
     Route: 048
  19. XANAX [Concomitant]
     Indication: PRODUCT USED FOR UNKNOWN INDICATION
     Dosage: 2 MG, 4X/DAY:QID
     Route: 048
  20. SEVERAL UNKNOWN BLOOD PRESSURE MEDICATIONS [Concomitant]
     Indication: HYPERTENSION
     Dosage: UNK, UNKNOWN
     Route: 048
     Dates: end: 20100601

REACTIONS (10)
  - ARTERIOVENOUS FISTULA SITE COMPLICATION [None]
  - ASTHENIA [None]
  - DIARRHOEA [None]
  - HEADACHE [None]
  - HYPOTENSION [None]
  - NAUSEA [None]
  - PROCEDURAL COMPLICATION [None]
  - PULSE PRESSURE DECREASED [None]
  - SYNCOPE [None]
  - TREMOR [None]
